FAERS Safety Report 8141486-9 (Version None)
Quarter: 2012Q1

REPORT INFORMATION
  Report Type: 
  Country: None (occurrence: None)
  Receive Date: 20120216
  Receipt Date: 20120210
  Transmission Date: 20120608
  Serious: Yes (Hospitalization)
  Sender: FDA-Public Use
  Company Number: DE-ROCHE-694778

PATIENT
  Sex: Female

DRUGS (7)
  1. AMITRIPTYLINE HCL [Concomitant]
  2. AVASTIN [Suspect]
     Indication: BREAST CANCER
     Dosage: ON DAY 1; CYCLE REPEATED EVERY THREE WEEKS; DOSE PER PROTOCOL. LAST DOSE PRIOR TO SAE ON 17 MAR 2010
     Route: 042
     Dates: start: 20091201, end: 20100414
  3. VINORELBINE TARTRATE [Suspect]
     Indication: BREAST CANCER
     Dosage: DAYS 1+8; CYCLE REPEATED EVERY THREE WEEKS; DOSE PER PROTOCOL; LAST DOSE PRIOR TO SAE ON 24 MAR 2010
     Route: 042
  4. XELODA [Suspect]
     Indication: BREAST CANCER
     Dosage: DAYS 1-14; CYCLE REPEATED EVERY THREE WEEKS; DOSE PER PROTOCOL;LAST DOSE PRIOR TO SAE ON 31 MAR 2010
     Route: 048
     Dates: start: 20091201, end: 20100416
  5. XELODA [Suspect]
  6. PANTOPRAZOLE [Concomitant]
  7. PARACODEINE [Concomitant]
     Dosage: DOSE: WHEN NECESSARY

REACTIONS (1)
  - PULMONARY EMBOLISM [None]
